FAERS Safety Report 25865722 (Version 1)
Quarter: 2025Q3

REPORT INFORMATION
  Report Type: Report from Study
  Country: US (occurrence: US)
  Receive Date: 20250930
  Receipt Date: 20250930
  Transmission Date: 20251020
  Serious: No
  Sender: TRAVERE THERAPEUTICS
  Company Number: US-TRAVERE-2025TVT01499

PATIENT
  Age: 29 Year
  Sex: Female

DRUGS (6)
  1. FILSPARI [Suspect]
     Active Substance: SPARSENTAN
     Indication: IgA nephropathy
     Route: 048
     Dates: start: 20250614
  2. NORVASC [Concomitant]
     Active Substance: AMLODIPINE BESYLATE
  3. FARXIGA [Concomitant]
     Active Substance: DAPAGLIFLOZIN PROPANEDIOL
  4. FERROUS SULFATE [Concomitant]
     Active Substance: FERROUS SULFATE
  5. OMEGA-3 FATTY ACIDS [Concomitant]
     Active Substance: OMEGA-3 FATTY ACIDS
  6. SPIRONOLACTONE [Concomitant]
     Active Substance: SPIRONOLACTONE

REACTIONS (2)
  - Urinary occult blood [Unknown]
  - Haemoglobin urine [Unknown]

NARRATIVE: CASE EVENT DATE: 20250708
